FAERS Safety Report 17837111 (Version 1)
Quarter: 2020Q2

REPORT INFORMATION
  Report Type: Spontaneous
  Country: US (occurrence: US)
  Receive Date: 20200529
  Receipt Date: 20200529
  Transmission Date: 20200714
  Serious: No
  Sender: FDA-Public Use
  Company Number: US-ELI_LILLY_AND_COMPANY-US202005008656

PATIENT
  Sex: Male

DRUGS (5)
  1. HUMALOG [Suspect]
     Active Substance: INSULIN LISPRO
     Indication: TYPE 2 DIABETES MELLITUS
     Dosage: 80 U, UNKNOWN (60-80 VIA SLIDING SCALE)
     Route: 058
  2. TESTOSTERON [TESTOSTERONE] [Concomitant]
     Indication: BLOOD TESTOSTERONE DECREASED
  3. TAMSULOSIN [Concomitant]
     Active Substance: TAMSULOSIN
     Indication: BLADDER DISORDER
     Dosage: UNK, BID
  4. LANTUS [Concomitant]
     Active Substance: INSULIN GLARGINE
     Indication: BLADDER DISORDER
  5. CIALIS [Suspect]
     Active Substance: TADALAFIL
     Indication: BLADDER DISORDER
     Dosage: UNK, UNKNOWN
     Route: 065

REACTIONS (2)
  - Nephropathy [Unknown]
  - Off label use [Unknown]
